FAERS Safety Report 13057276 (Version 1)
Quarter: 2016Q4

REPORT INFORMATION
  Report Type: Spontaneous
  Country: GB (occurrence: GB)
  Receive Date: 20161223
  Receipt Date: 20161223
  Transmission Date: 20170207
  Serious: Yes (Life-Threatening, Other)
  Sender: FDA-Public Use
  Company Number: GB-INTERNATIONAL MEDICATION SYSTEMS, LIMITED-1061221

PATIENT
  Age: 48 Year
  Sex: Male

DRUGS (17)
  1. DEXAMETHASONE. [Suspect]
     Active Substance: DEXAMETHASONE
  2. MIDAZOLAM [Suspect]
     Active Substance: MIDAZOLAM\MIDAZOLAM HYDROCHLORIDE
  3. ONDANSETRON [Suspect]
     Active Substance: ONDANSETRON
  4. PARACETAMOL [Suspect]
     Active Substance: ACETAMINOPHEN
  5. DESFLURANE. [Suspect]
     Active Substance: DESFLURANE
  6. EPHEDRINE. [Suspect]
     Active Substance: EPHEDRINE
  7. PROPOFOL. [Suspect]
     Active Substance: PROPOFOL
  8. ROCURONIUM [Suspect]
     Active Substance: ROCURONIUM BROMIDE
  9. SEVOFLURANE. [Suspect]
     Active Substance: SEVOFLURANE
  10. FENTANYL. [Suspect]
     Active Substance: FENTANYL
  11. TIOTROPIUM [Concomitant]
     Active Substance: TIOTROPIUM
  12. SERETIDE [Concomitant]
     Active Substance: FLUTICASONE PROPIONATE\SALMETEROL XINAFOATE
  13. DICLOFENAC SODIUM. [Suspect]
     Active Substance: DICLOFENAC SODIUM
  14. SALBUTAMOL [Concomitant]
     Active Substance: ALBUTEROL
  15. MORPHINE [Suspect]
     Active Substance: MORPHINE
  16. ATRACURIUM BESYLATE. [Suspect]
     Active Substance: ATRACURIUM BESYLATE
  17. REMIFENTANIL [Suspect]
     Active Substance: REMIFENTANIL

REACTIONS (1)
  - Hyperkalaemia [Recovered/Resolved]

NARRATIVE: CASE EVENT DATE: 20160817
